FAERS Safety Report 6602965-6 (Version None)
Quarter: 2010Q1

REPORT INFORMATION
  Report Type: 
  Country: None (occurrence: None)
  Receive Date: 20100218
  Receipt Date: 20100208
  Transmission Date: 20100710
  Serious: Yes (Hospitalization)
  Sender: FDA-Public Use
  Company Number: 230224J09CAN

PATIENT
  Sex: Female

DRUGS (10)
  1. REBIF [Suspect]
     Indication: RELAPSING-REMITTING MULTIPLE SCLEROSIS
     Dosage: 22 MCG, 3 IN 1 WEEKS, SUBCUTANEOUS
     Route: 058
     Dates: start: 20000829
  2. ALTACE [Concomitant]
  3. FOSIMAX (ALENDRONATE SODIUM) [Concomitant]
  4. ALPRAZOLAM (APLRAZOLAM) [Concomitant]
  5. APO-TRIAZIDE (DYAZIDE) [Concomitant]
  6. LEVOTHYROXINE SODIUM [Concomitant]
  7. METOPROLOL (METOPROLOL /00376901/) [Concomitant]
  8. PRILOSEC [Concomitant]
  9. ASPIRIN [Concomitant]
  10. IRON SUPPLEMENT (IRON) [Concomitant]

REACTIONS (3)
  - HIP ARTHROPLASTY [None]
  - RASH [None]
  - URTICARIA [None]
